FAERS Safety Report 15136114 (Version 2)
Quarter: 2019Q2

REPORT INFORMATION
  Report Type: Spontaneous
  Country: IT (occurrence: IT)
  Receive Date: 20180712
  Receipt Date: 20190422
  Transmission Date: 20190711
  Serious: Yes (Other)
  Sender: FDA-Public Use
  Company Number: IT-PFIZER INC-2018275851

PATIENT
  Age: 67 Year

DRUGS (7)
  1. MERREM [Concomitant]
     Active Substance: MEROPENEM
     Dosage: UNK
  2. NORVASC [Suspect]
     Active Substance: AMLODIPINE BESYLATE
     Indication: HYPERTENSION
     Dosage: 1 DF, 1X/DAY
     Dates: start: 20180316
  3. RIFADIN [Concomitant]
     Active Substance: RIFAMPIN
     Dosage: UNK
  4. PREFOLIC [Concomitant]
     Active Substance: LEUCOVORIN CALCIUM
     Dosage: UNK
  5. CATAPRESAN [Suspect]
     Active Substance: CLONIDINE
     Indication: HYPERTENSION
     Dosage: UNK
     Route: 030
     Dates: start: 20180319
  6. CUBICIN [Concomitant]
     Active Substance: DAPTOMYCIN
     Dosage: UNK
  7. PLAUNAZIDE [Suspect]
     Active Substance: HYDROCHLOROTHIAZIDE\OLMESARTAN MEDOXOMIL
     Indication: HYPERTENSION
     Dosage: 1 DF, 1X/DAY
     Route: 048
     Dates: start: 20180320

REACTIONS (2)
  - Therapy non-responder [Unknown]
  - Hypertensive crisis [Recovering/Resolving]

NARRATIVE: CASE EVENT DATE: 20180320
